FAERS Safety Report 14940261 (Version 6)
Quarter: 2019Q3

REPORT INFORMATION
  Report Type: Report from Study
  Country: CA (occurrence: CA)
  Receive Date: 20180525
  Receipt Date: 20190809
  Transmission Date: 20191004
  Serious: Yes (Other)
  Sender: FDA-Public Use
  Company Number: CA-SA-2017SA222743

PATIENT
  Age: 37 Year
  Sex: Female

DRUGS (6)
  1. METHYLPREDNISOLONE. [Suspect]
     Active Substance: METHYLPREDNISOLONE
     Dosage: 1 G,UNK
     Route: 042
     Dates: start: 20171106, end: 20171108
  2. RANITIDINE. [Concomitant]
     Active Substance: RANITIDINE
     Indication: PREMEDICATION
     Dosage: 150 MG,UNK
     Route: 048
     Dates: start: 20171106, end: 20171108
  3. ACICLOVIR [Concomitant]
     Active Substance: ACYCLOVIR
     Indication: PREMEDICATION
     Dosage: 200 MG,BID
     Route: 048
     Dates: start: 20171106
  4. ALEMTUZUMAB [Suspect]
     Active Substance: ALEMTUZUMAB
     Indication: RELAPSING-REMITTING MULTIPLE SCLEROSIS
     Dosage: 12 MG,QD
     Route: 041
     Dates: start: 20171106, end: 20171108
  5. REACTINE [CETIRIZINE HYDROCHLORIDE] [Concomitant]
     Active Substance: CETIRIZINE HYDROCHLORIDE
     Indication: PREMEDICATION
     Dosage: 10 MG,PRN
     Route: 048
     Dates: start: 20171106
  6. TYLENOL [Concomitant]
     Active Substance: ACETAMINOPHEN
     Indication: PREMEDICATION
     Dosage: 975 MG,UNK
     Route: 048
     Dates: start: 20171106, end: 20171108

REACTIONS (30)
  - Hyperthyroidism [Not Recovered/Not Resolved]
  - Urticaria [Recovered/Resolved]
  - Blood thyroid stimulating hormone increased [Not Recovered/Not Resolved]
  - Thyroxine free increased [Recovered/Resolved]
  - C-reactive protein increased [Unknown]
  - Lymphocyte count decreased [Recovered/Resolved]
  - Thyroxine free decreased [Not Recovered/Not Resolved]
  - White blood cell count increased [Not Recovered/Not Resolved]
  - Blood creatinine decreased [Recovered/Resolved]
  - Tri-iodothyronine decreased [Not Recovered/Not Resolved]
  - Urine analysis abnormal [Not Recovered/Not Resolved]
  - Urinary sediment present [Not Recovered/Not Resolved]
  - Neutrophil count increased [Not Recovered/Not Resolved]
  - Abdominal discomfort [Recovered/Resolved]
  - Feeling cold [Recovered/Resolved]
  - Blood urine present [Recovered/Resolved]
  - Muscle spasms [Recovered/Resolved]
  - White blood cells urine positive [Recovered/Resolved]
  - Platelet count increased [Not Recovered/Not Resolved]
  - Specific gravity urine decreased [Recovered/Resolved]
  - Bacterial test positive [Not Recovered/Not Resolved]
  - Red blood cells urine positive [Recovered/Resolved]
  - Erythema [Recovered/Resolved]
  - Insomnia [Recovering/Resolving]
  - Alopecia [Unknown]
  - Blood thyroid stimulating hormone decreased [Recovered/Resolved]
  - Tri-iodothyronine increased [Recovered/Resolved]
  - Monocyte count increased [Not Recovered/Not Resolved]
  - Blood creatinine increased [Recovered/Resolved]
  - Nausea [Recovered/Resolved]

NARRATIVE: CASE EVENT DATE: 20171106
